FAERS Safety Report 5697621-5 (Version None)
Quarter: 2008Q2

REPORT INFORMATION
  Report Type: 
  Country: None (occurrence: None)
  Receive Date: 20080408
  Receipt Date: 20080403
  Transmission Date: 20081010
  Serious: No
  Sender: FDA-Public Use
  Company Number: CH-ASTRAZENECA-2008PK00713

PATIENT

DRUGS (2)
  1. SEROQUEL [Suspect]
     Route: 048
     Dates: start: 20070901
  2. VALPROATE SODIUM [Concomitant]
     Dates: start: 20070901

REACTIONS (1)
  - NEUTROPENIA [None]
